FAERS Safety Report 5842310-7 (Version None)
Quarter: 2008Q3

REPORT INFORMATION
  Report Type: 
  Country: None (occurrence: None)
  Receive Date: 20080812
  Receipt Date: 20080807
  Transmission Date: 20090109
  Serious: Yes (Hospitalization)
  Sender: FDA-Public Use
  Company Number: JP-AVENTIS-200812195JP

PATIENT
  Age: 64 Year
  Sex: Male
  Weight: 52.6 kg

DRUGS (8)
  1. AMARYL [Suspect]
     Route: 048
  2. AMARYL [Suspect]
     Dosage: DOSE: 3-0-1
     Route: 048
     Dates: start: 20070420, end: 20071228
  3. MICARDIS [Concomitant]
     Indication: HYPERTENSION
     Route: 048
     Dates: start: 20070420, end: 20080621
  4. TANATRIL [Concomitant]
     Indication: HYPERTENSION
     Route: 048
     Dates: start: 20070420, end: 20080621
  5. ADALAT [Concomitant]
     Indication: HYPERTENSION
     Route: 048
     Dates: start: 20070420, end: 20080621
  6. CARDENALIN [Concomitant]
     Indication: HYPERTENSION
     Route: 048
     Dates: start: 20070420, end: 20070831
  7. LIVALO [Concomitant]
     Route: 048
     Dates: start: 20070420, end: 20080216
  8. RHYTHMY [Concomitant]
     Route: 048
     Dates: start: 20070420

REACTIONS (1)
  - HYPOGLYCAEMIA UNAWARENESS [None]
